FAERS Safety Report 7914563-2 (Version None)
Quarter: 2011Q4

REPORT INFORMATION
  Report Type: 
  Country: None (occurrence: None)
  Receive Date: 20111115
  Receipt Date: 20111031
  Transmission Date: 20120403
  Serious: Yes (Hospitalization)
  Sender: FDA-Public Use
  Company Number: PHHY2011AU96907

PATIENT
  Age: 62 Year
  Sex: Male

DRUGS (4)
  1. BASILIXIMAB [Suspect]
     Indication: RENAL TRANSPLANT
  2. METHYLPREDNISOLONE [Concomitant]
  3. TACROLIMUS [Concomitant]
  4. MYCOPHENOLATE MOFETIL [Concomitant]

REACTIONS (20)
  - TOXICITY TO VARIOUS AGENTS [None]
  - ILEUS [None]
  - KIDNEY TRANSPLANT REJECTION [None]
  - CHRONIC ALLOGRAFT NEPHROPATHY [None]
  - THROMBOCYTOPENIA [None]
  - OEDEMA PERIPHERAL [None]
  - PERITONEAL CANDIDIASIS [None]
  - BLOOD CREATININE INCREASED [None]
  - ABDOMINAL PAIN UPPER [None]
  - ANAEMIA [None]
  - HAEMOGLOBIN DECREASED [None]
  - CLOSTRIDIUM DIFFICILE COLITIS [None]
  - ATRIAL FIBRILLATION [None]
  - POSTOPERATIVE WOUND COMPLICATION [None]
  - FLUID OVERLOAD [None]
  - ESCHERICHIA SEPSIS [None]
  - BLOOD GLUCOSE INCREASED [None]
  - OPERATIVE HAEMORRHAGE [None]
  - RENAL IMPAIRMENT [None]
  - FLUID RETENTION [None]
